FAERS Safety Report 7119901-9 (Version None)
Quarter: 2010Q4

REPORT INFORMATION
  Report Type: 
  Country: None (occurrence: None)
  Receive Date: 20101123
  Receipt Date: 20101008
  Transmission Date: 20110411
  Serious: No
  Sender: FDA-Public Use
  Company Number: US-BRISTOL-MYERS SQUIBB COMPANY-15326291

PATIENT
  Age: 65 Year
  Sex: Male

DRUGS (4)
  1. ONGLYZA [Suspect]
     Dosage: TAKEN 3 MONTHS AGO 30 COUNT BOTTLE
     Dates: start: 20100101
  2. ACTOS [Concomitant]
  3. METFORMIN HCL [Concomitant]
  4. GLYBURIDE [Concomitant]

REACTIONS (2)
  - DRUG INEFFECTIVE [None]
  - OEDEMA PERIPHERAL [None]
